FAERS Safety Report 11860810 (Version 1)
Quarter: 2015Q4

REPORT INFORMATION
  Report Type: Spontaneous
  Country: US (occurrence: US)
  Receive Date: 20151222
  Receipt Date: 20151222
  Transmission Date: 20160305
  Serious: Yes (Hospitalization, Other)
  Sender: FDA-Public Use
  Company Number: US-GLAXOSMITHKLINE-US2015180428

PATIENT
  Sex: Female

DRUGS (10)
  1. PHENERGAN [Suspect]
     Active Substance: PROMETHAZINE HYDROCHLORIDE
     Indication: VOMITING
  2. CARAFATE [Concomitant]
     Active Substance: SUCRALFATE
  3. MOTRIN [Concomitant]
     Active Substance: IBUPROFEN
  4. PROTONIX [Concomitant]
     Active Substance: PANTOPRAZOLE SODIUM
  5. TRICOR [Concomitant]
     Active Substance: FENOFIBRATE
  6. LAMOTRIGINE. [Suspect]
     Active Substance: LAMOTRIGINE
     Dosage: UNK
     Dates: start: 2008
  7. VITAMIN D [Concomitant]
     Active Substance: CHOLECALCIFEROL
  8. LAMICTAL [Suspect]
     Active Substance: LAMOTRIGINE
     Dosage: UNK
     Route: 048
     Dates: start: 2009, end: 201510
  9. LAMICTAL [Suspect]
     Active Substance: LAMOTRIGINE
     Dosage: UNK
     Dates: start: 20151218
  10. SYNTHROID [Concomitant]
     Active Substance: LEVOTHYROXINE SODIUM

REACTIONS (9)
  - Vomiting [Recovered/Resolved]
  - Diarrhoea [Recovered/Resolved]
  - Seizure [Unknown]
  - Generalised tonic-clonic seizure [Unknown]
  - Malaise [Unknown]
  - Product substitution issue [Unknown]
  - Drug dispensing error [Unknown]
  - Somnolence [Unknown]
  - Depression [Recovered/Resolved]
